FAERS Safety Report 22331018 (Version 1)
Quarter: 2023Q2

REPORT INFORMATION
  Report Type: Spontaneous
  Country: US (occurrence: None)
  Receive Date: 20230515
  Receipt Date: 20230515
  Transmission Date: 20230722
  Serious: Yes (Other)
  Sender: FDA-Public Use
  Company Number: None

PATIENT
  Age: 67 Year
  Sex: Female
  Weight: 117 kg

DRUGS (2)
  1. KETOROLAC [Suspect]
     Active Substance: KETOROLAC TROMETHAMINE
     Indication: Cataract operation
     Route: 047
  2. OFLOXACIN OPHTHALMIC [Suspect]
     Active Substance: OFLOXACIN

REACTIONS (2)
  - Vision blurred [None]
  - Halo vision [None]
